FAERS Safety Report 5856964-2 (Version None)
Quarter: 2008Q3

REPORT INFORMATION
  Report Type: 
  Country: None (occurrence: None)
  Receive Date: 20080825
  Receipt Date: 20080818
  Transmission Date: 20090109
  Serious: Yes (Other)
  Sender: FDA-Public Use
  Company Number: US-BAYER-200812494BCC

PATIENT
  Age: 80 Year
  Sex: Female
  Weight: 47 kg

DRUGS (8)
  1. ASPIRIN [Suspect]
     Indication: CORONARY ARTERY DISEASE
     Dosage: UNIT DOSE: 81 MG
     Route: 048
     Dates: start: 20071030, end: 20080617
  2. FUROSEMIDE [Concomitant]
  3. XANAX [Concomitant]
  4. LISINOPRIL [Concomitant]
  5. ANTIDEPRESSANT [Concomitant]
  6. DIGOXIN [Concomitant]
  7. ARICEPT [Concomitant]
  8. FUROSEMIDE [Concomitant]

REACTIONS (8)
  - ANAEMIA [None]
  - ANOREXIA [None]
  - ASTHENIA [None]
  - FAECES DISCOLOURED [None]
  - HAEMORRHAGE [None]
  - RECTAL HAEMORRHAGE [None]
  - STOMACH DISCOMFORT [None]
  - WEIGHT DECREASED [None]
